FAERS Safety Report 4538059-3 (Version None)
Quarter: 2004Q4

REPORT INFORMATION
  Report Type: 
  Country: None (occurrence: None)
  Receive Date: 20041220
  Receipt Date: 20041204
  Transmission Date: 20050328
  Serious: Yes (Life-Threatening, Hospitalization, Other)
  Sender: FDA-Public Use
  Company Number: HQWYE774206DEC04

PATIENT
  Sex: Male

DRUGS (2)
  1. BENEFIX  (NONACOG ALFA, INJECTION) [Suspect]
     Indication: PROPHYLAXIS
     Dosage: 15,000 UNITS EVERY DAY INTRAVENOUS
     Route: 042
  2. CLOXACILIN (CLOXACILLIN) [Concomitant]

REACTIONS (1)
  - OEDEMA [None]
